FAERS Safety Report 9189881 (Version 1)
Quarter: 2013Q1

REPORT INFORMATION
  Report Type: Spontaneous
  Country: FR (occurrence: None)
  Receive Date: 20130322
  Receipt Date: 20130322
  Transmission Date: 20140127
  Serious: Yes (Hospitalization)
  Sender: FDA-Public Use
  Company Number: SYM-2013-01787

PATIENT
  Age: 48 Year
  Sex: Male

DRUGS (7)
  1. FLAGYL [Suspect]
     Dates: start: 20091230, end: 20100119
  2. AMOXICILLIN \CLAVULANIC ACID [Suspect]
  3. CIFLOXA [Suspect]
     Dates: start: 20091225, end: 20100206
  4. AMIKACIN [Suspect]
  5. FORTUM [Suspect]
     Dates: start: 20091230, end: 20100206
  6. VANCOMYCIN HYDROCHLORIDE [Suspect]
     Dates: start: 20091230, end: 20100206
  7. TAZOCILLINE [Suspect]
     Dates: start: 20100119, end: 20100206

REACTIONS (1)
  - Drug reaction with eosinophilia and systemic symptoms [None]
